FAERS Safety Report 24889551 (Version 4)
Quarter: 2025Q1

REPORT INFORMATION
  Report Type: Report from Study
  Country: US (occurrence: US)
  Receive Date: 20250127
  Receipt Date: 20250318
  Transmission Date: 20250409
  Serious: Yes (Hospitalization, Other)
  Sender: BAYER HEALTHCARE PHARMACEUTICALS INC.
  Company Number: US-BAYER-2025A010895

PATIENT
  Age: 59 Year
  Sex: Female

DRUGS (6)
  1. ADEMPAS [Suspect]
     Active Substance: RIOCIGUAT
     Indication: Pulmonary arterial hypertension
  2. ADEMPAS [Suspect]
     Active Substance: RIOCIGUAT
     Indication: Pulmonary arterial hypertension
     Dosage: 1 MG, TID
     Route: 048
     Dates: start: 202501
  3. ADEMPAS [Suspect]
     Active Substance: RIOCIGUAT
     Indication: Pulmonary arterial hypertension
     Dosage: 1.5 MG, TID
     Route: 048
  4. ADEMPAS [Suspect]
     Active Substance: RIOCIGUAT
     Indication: Pulmonary arterial hypertension
     Dosage: 1 MG, TID
     Dates: start: 202503
  5. TADALAFIL [Suspect]
     Active Substance: TADALAFIL
     Dates: start: 20250217
  6. OPSUMIT [Concomitant]
     Active Substance: MACITENTAN

REACTIONS (10)
  - Loss of consciousness [None]
  - Blood pressure decreased [Not Recovered/Not Resolved]
  - Influenza [None]
  - Tachycardia [None]
  - Contraindicated product administered [None]
  - Product dose omission issue [None]
  - Dizziness [Not Recovered/Not Resolved]
  - Blood pressure fluctuation [Not Recovered/Not Resolved]
  - Heart rate decreased [None]
  - Dizziness [Recovered/Resolved]

NARRATIVE: CASE EVENT DATE: 20250101
